FAERS Safety Report 8883542 (Version 7)
Quarter: 2013Q4

REPORT INFORMATION
  Report Type: Report from Study
  Country: LV (occurrence: LV)
  Receive Date: 20121102
  Receipt Date: 20131210
  Transmission Date: 20140711
  Serious: Yes (Hospitalization)
  Sender: FDA-Public Use
  Company Number: LV-ROCHE-1148551

PATIENT
  Age: 62 Year
  Sex: Female
  Weight: 95 kg

DRUGS (4)
  1. BLINDED ONARTUZUMAB [Suspect]
     Indication: NON-SMALL CELL LUNG CANCER
     Dosage: MOST RECENT DOSE WAS ON 04/OCT/2012
     Route: 042
     Dates: start: 20120911, end: 20121025
  2. BEVACIZUMAB [Suspect]
     Indication: NON-SMALL CELL LUNG CANCER
     Dosage: LAST DOSE PRIOR TO SAE WAS 1575 MG ON 04/OCT/2012
     Route: 042
     Dates: start: 20120911, end: 20121025
  3. CARBOPLATIN [Suspect]
     Indication: NON-SMALL CELL LUNG CANCER
     Dosage: LAST DOSE PRIOR TO SAE WAS 589.6 MG ON 04/OCT/2012
     Route: 042
     Dates: start: 20120911, end: 20121025
  4. PACLITAXEL [Suspect]
     Indication: NON-SMALL CELL LUNG CANCER
     Dosage: LAST DOSE PRIOR TO SAE WAS 408 MG ON 04/OCT/2012
     Route: 042
     Dates: start: 20120911, end: 20121025

REACTIONS (3)
  - Device related infection [Recovered/Resolved]
  - Diarrhoea [Recovered/Resolved]
  - Blood creatinine increased [Recovered/Resolved]
